FAERS Safety Report 26002592 (Version 3)
Quarter: 2025Q4

REPORT INFORMATION
  Report Type: Report from Study
  Country: KR (occurrence: KR)
  Receive Date: 20251106
  Receipt Date: 20251111
  Transmission Date: 20260118
  Serious: Yes (Hospitalization, Other)
  Sender: ROCHE
  Company Number: KR-ROCHE-10000395933

PATIENT
  Age: 58 Year
  Sex: Female
  Weight: 48.8 kg

DRUGS (16)
  1. PHESGO [Suspect]
     Active Substance: HYALURONIDASE-ZZXF\PERTUZUMAB\TRASTUZUMAB
     Indication: HER2 positive breast cancer
     Dosage: 1200/600 MG
     Route: 058
     Dates: start: 20250715, end: 20250715
  2. PHESGO [Suspect]
     Active Substance: HYALURONIDASE-ZZXF\PERTUZUMAB\TRASTUZUMAB
     Dosage: 600/600 MG
     Route: 058
     Dates: start: 20250805, end: 20250805
  3. PHESGO [Suspect]
     Active Substance: HYALURONIDASE-ZZXF\PERTUZUMAB\TRASTUZUMAB
     Dosage: 600/600 MG
     Route: 058
     Dates: start: 20250826, end: 20250826
  4. PHESGO [Suspect]
     Active Substance: HYALURONIDASE-ZZXF\PERTUZUMAB\TRASTUZUMAB
     Dosage: 600/600MG
     Route: 058
     Dates: start: 20250916, end: 20250916
  5. DOCETAXEL [Suspect]
     Active Substance: DOCETAXEL
     Indication: HER2 positive breast cancer
     Route: 042
     Dates: start: 20250715, end: 20250715
  6. DOCETAXEL [Suspect]
     Active Substance: DOCETAXEL
     Route: 042
     Dates: start: 20250805, end: 20250805
  7. DOCETAXEL [Suspect]
     Active Substance: DOCETAXEL
     Route: 042
     Dates: start: 20250826, end: 20250826
  8. DOCETAXEL [Suspect]
     Active Substance: DOCETAXEL
     Route: 042
     Dates: start: 20250916, end: 20250916
  9. CARBOPLATIN [Suspect]
     Active Substance: CARBOPLATIN
     Indication: HER2 positive breast cancer
     Route: 042
     Dates: start: 20250715, end: 20250715
  10. CARBOPLATIN [Suspect]
     Active Substance: CARBOPLATIN
     Route: 042
     Dates: start: 20250805, end: 20250805
  11. CARBOPLATIN [Suspect]
     Active Substance: CARBOPLATIN
     Route: 042
     Dates: start: 20250826, end: 20250826
  12. CARBOPLATIN [Suspect]
     Active Substance: CARBOPLATIN
     Route: 042
     Dates: start: 20250916, end: 20250916
  13. Dapalon Tab 10mg [Concomitant]
     Indication: Diabetes mellitus
     Dosage: 1 TAB
     Route: 048
     Dates: start: 2017
  14. Rosuzet Tab. 10/5mg [Concomitant]
     Indication: Diabetes mellitus
     Dosage: 10/5MG
     Route: 048
     Dates: start: 2017
  15. JANUMET XR extended relea se tablet 50/1000 mg [Concomitant]
     Indication: Diabetes mellitus
     Dosage: 50/1000MG?1 TAB
     Route: 048
     Dates: start: 2017
  16. Dulastin injection prefilled s yringe (Tripegfilgrastim) [Concomitant]
     Dosage: VIAL
     Route: 058
     Dates: start: 20250716

REACTIONS (3)
  - Diarrhoea [Recovered/Resolved]
  - Hepatotoxicity [Recovered/Resolved]
  - Anaemia [Recovering/Resolving]

NARRATIVE: CASE EVENT DATE: 20250719
